FAERS Safety Report 5724063-6 (Version None)
Quarter: 2008Q2

REPORT INFORMATION
  Report Type: 
  Country: None (occurrence: None)
  Receive Date: 20080430
  Receipt Date: 20080425
  Transmission Date: 20081010
  Serious: Yes (Death, Hospitalization)
  Sender: FDA-Public Use
  Company Number: CA-BOEHRINGER INGELHEIM GMBH, GERMANY-2008-CN-00172CN

PATIENT
  Sex: Male

DRUGS (3)
  1. CATAPRES [Suspect]
     Indication: GROIN PAIN
     Dates: start: 20080228, end: 20080421
  2. MORPHINE [Concomitant]
     Indication: GROIN PAIN
     Dates: start: 20080228, end: 20080421
  3. BUPIVACAINE [Concomitant]
     Indication: GROIN PAIN
     Dates: start: 20080228, end: 20080421

REACTIONS (1)
  - RENAL FAILURE [None]
